FAERS Safety Report 20826057 (Version 1)
Quarter: 2022Q2

REPORT INFORMATION
  Report Type: Spontaneous
  Country: IT (occurrence: IT)
  Receive Date: 20220513
  Receipt Date: 20220513
  Transmission Date: 20220720
  Serious: Yes (Other)
  Sender: FDA-Public Use
  Company Number: IT-UCBSA-2022026068

PATIENT
  Age: 38 Year
  Sex: Female

DRUGS (16)
  1. VIMPAT [Suspect]
     Active Substance: LACOSAMIDE
     Indication: Status epilepticus
     Dosage: 400 MG/DAY
  2. VIMPAT [Suspect]
     Active Substance: LACOSAMIDE
     Dosage: 600 MG/DAY
     Route: 042
  3. KEPPRA [Suspect]
     Active Substance: LEVETIRACETAM
     Indication: Status epilepticus
     Dosage: 3000MG/DAY
     Route: 042
  4. LORAZEPAM [Concomitant]
     Active Substance: LORAZEPAM
     Indication: Status epilepticus
     Route: 042
  5. PHENYTOIN [Concomitant]
     Active Substance: PHENYTOIN
     Indication: Status epilepticus
     Dosage: LOADING DOSE OF 800 MG
  6. PHENYTOIN [Concomitant]
     Active Substance: PHENYTOIN
     Dosage: 500 MG/DAY
     Route: 042
  7. THIOPENTAL [Concomitant]
     Active Substance: THIOPENTAL
     Indication: Status epilepticus
     Dosage: 3 MG/KG/H
  8. MIDAZOLAM [Concomitant]
     Active Substance: MIDAZOLAM
     Indication: Status epilepticus
     Dosage: 0,13 MG/KG/H
  9. PHENOBARBITAL [Concomitant]
     Active Substance: PHENOBARBITAL
     Indication: Status epilepticus
     Dosage: 200 MG/DAY
     Route: 042
  10. VALPROIC ACID [Concomitant]
     Active Substance: VALPROIC ACID
     Indication: Status epilepticus
     Route: 042
  11. TOPIRAMATE [Concomitant]
     Active Substance: TOPIRAMATE
     Indication: Status epilepticus
  12. PERAMPANEL [Concomitant]
     Active Substance: PERAMPANEL
     Indication: Status epilepticus
  13. PROPOFOL [Concomitant]
     Active Substance: PROPOFOL
     Indication: Status epilepticus
  14. KETAMINE [Concomitant]
     Active Substance: KETAMINE
     Indication: Status epilepticus
  15. IMMUNE GLOBULIN NOS [Concomitant]
     Active Substance: IMMUNE GLOBULIN NOS
     Indication: Status epilepticus
     Dosage: 0.4 G/KG OVER 5 DAYS FOR TWO TIMES
     Route: 042
  16. VALPROATE [Concomitant]
     Active Substance: VALPROIC ACID
     Indication: Status epilepticus
     Dosage: (500?2000 MG/DAY

REACTIONS (2)
  - Status epilepticus [Recovered/Resolved]
  - Product use in unapproved indication [Unknown]
